FAERS Safety Report 4627885-8 (Version None)
Quarter: 2005Q2

REPORT INFORMATION
  Report Type: 
  Country: None (occurrence: None)
  Receive Date: 20050404
  Receipt Date: 20050404
  Transmission Date: 20051028
  Serious: Yes (Death)
  Sender: FDA-Public Use
  Company Number: None

PATIENT
  Age: 53 Year
  Weight: 110.6777 kg

DRUGS (14)
  1. LOVENOX [Suspect]
     Indication: ATRIAL FIBRILLATION
     Dosage: 100MG TWICE DAILY SUBCUTANEOUS
     Route: 058
     Dates: start: 20050131, end: 20050203
  2. ASPIRIN [Concomitant]
  3. LANSOPRAZOLE [Concomitant]
  4. LORATADINE [Concomitant]
  5. FENTANYUL [Concomitant]
  6. DIGOXIN [Concomitant]
  7. PREDNISONE [Concomitant]
  8. METOCLOPRAMIDE [Concomitant]
  9. SPIRONOLACTONE [Concomitant]
  10. METOPROLOL TARTRATE [Concomitant]
  11. LEVOPHED [Concomitant]
  12. ACETAZOLAMIDE [Concomitant]
  13. . [Concomitant]
  14. SORBITOL [Concomitant]

REACTIONS (2)
  - ABDOMINAL WALL DISORDER [None]
  - HAEMATOMA [None]
